FAERS Safety Report 19815782 (Version 1)
Quarter: 2021Q3

REPORT INFORMATION
  Report Type: Spontaneous
  Country: US (occurrence: US)
  Receive Date: 20210910
  Receipt Date: 20210910
  Transmission Date: 20211014
  Serious: No
  Sender: FDA-Public Use
  Company Number: US-PFIZER INC-202101160443

PATIENT
  Age: 81 Year
  Sex: Male
  Weight: 68.04 kg

DRUGS (2)
  1. BUMEX [Concomitant]
     Active Substance: BUMETANIDE
     Dosage: UNK
  2. VYNDAMAX [Suspect]
     Active Substance: TAFAMIDIS
     Indication: AMYLOIDOSIS
     Dosage: 61 MG
     Dates: start: 202002

REACTIONS (9)
  - Weight decreased [Unknown]
  - Drug ineffective for unapproved indication [Unknown]
  - General physical health deterioration [Unknown]
  - Anxiety [Unknown]
  - Gait inability [Unknown]
  - Loss of personal independence in daily activities [Unknown]
  - Off label use [Unknown]
  - Eating disorder [Unknown]
  - Pain [Unknown]
